FAERS Safety Report 9910427 (Version 1)
Quarter: 2014Q1

REPORT INFORMATION
  Report Type: Spontaneous
  Country: DE (occurrence: DE)
  Receive Date: 20140219
  Receipt Date: 20140219
  Transmission Date: 20141002
  Serious: Yes (Life-Threatening, Disabling)
  Sender: FDA-Public Use
  Company Number: DE-BAXTER-2014BAX007809

PATIENT
  Age: 63 Year
  Sex: Male

DRUGS (1)
  1. ENDOXAN 1G [Suspect]
     Indication: GRANULOMA
     Route: 065
     Dates: end: 201208

REACTIONS (1)
  - Bronchial carcinoma [Not Recovered/Not Resolved]
